FAERS Safety Report 6074835-6 (Version None)
Quarter: 2009Q1

REPORT INFORMATION
  Report Type: 
  Country: None (occurrence: None)
  Receive Date: 20090212
  Receipt Date: 20090205
  Transmission Date: 20090719
  Serious: Yes (Hospitalization)
  Sender: FDA-Public Use
  Company Number: PHEH2009US01452

PATIENT
  Sex: Female

DRUGS (2)
  1. TRILEPTAL [Suspect]
     Indication: BIPOLAR DISORDER
     Dosage: 600 MG, Q12H
     Route: 048
  2. TRILEPTAL [Suspect]
     Dosage: 600 MG, HS
     Route: 048

REACTIONS (2)
  - HYPONATRAEMIA [None]
  - THROMBOSIS [None]
